FAERS Safety Report 8464964-1 (Version None)
Quarter: 2012Q2

REPORT INFORMATION
  Report Type: 
  Country: None (occurrence: None)
  Receive Date: 20120626
  Receipt Date: 20120622
  Transmission Date: 20120825
  Serious: Yes (Hospitalization)
  Sender: FDA-Public Use
  Company Number: IT-SANOFI-AVENTIS-2012SA044689

PATIENT
  Age: 68 Year
  Sex: Male

DRUGS (9)
  1. ESCITALOPRAM [Concomitant]
     Indication: DEPRESSION
  2. SEACOR [Concomitant]
  3. LAMOTRIGINE [Concomitant]
  4. COUMADIN [Concomitant]
  5. RAMIPRIL [Suspect]
     Route: 048
     Dates: start: 20030101, end: 20110116
  6. ATORVASTATIN CALCIUM [Concomitant]
  7. LASIX [Suspect]
     Route: 048
     Dates: start: 20030101, end: 20110116
  8. LASIX [Suspect]
     Dosage: DOSE REDUCED
     Route: 065
  9. CARVEDILOL [Suspect]
     Route: 048
     Dates: start: 20030101

REACTIONS (1)
  - SYNCOPE [None]
